FAERS Safety Report 7122766-2 (Version None)
Quarter: 2010Q4

REPORT INFORMATION
  Report Type: 
  Country: None (occurrence: None)
  Receive Date: 20101124
  Receipt Date: 20101117
  Transmission Date: 20110411
  Serious: Yes (Other)
  Sender: FDA-Public Use
  Company Number: US-AMGEN-USASP2010005606

PATIENT

DRUGS (2)
  1. NPLATE [Suspect]
     Indication: IDIOPATHIC THROMBOCYTOPENIC PURPURA
     Dosage: 54 A?G, UNK
     Dates: start: 20090917, end: 20091028
  2. CORTICOSTEROIDS [Concomitant]

REACTIONS (2)
  - ADVERSE EVENT [None]
  - SURGERY [None]
